FAERS Safety Report 13531261 (Version 1)
Quarter: 2017Q2

REPORT INFORMATION
  Report Type: Spontaneous
  Country: US (occurrence: US)
  Receive Date: 20170510
  Receipt Date: 20170510
  Transmission Date: 20170830
  Serious: No
  Sender: FDA-Public Use
  Company Number: None

PATIENT
  Age: 83 Year
  Sex: Female
  Weight: 67.65 kg

DRUGS (8)
  1. LEVOTHYROINE 50 MCG SANDOZ [Concomitant]
     Active Substance: LEVOTHYROXINE
  2. LOW DOSE ASPIRIN [Concomitant]
     Active Substance: ASPIRIN
  3. ALEVE [Concomitant]
     Active Substance: NAPROXEN SODIUM
  4. CEHALEXIN 500MG CAPSULES [Suspect]
     Active Substance: CEPHALEXIN
     Indication: SKIN INFECTION
     Dosage: 500MG 14 TOOK 7 2 X D BY MOUTH
     Route: 048
     Dates: start: 20170418
  5. FLUTRESONE SPRAY [Concomitant]
  6. OMEPRAZOLE. [Concomitant]
     Active Substance: OMEPRAZOLE
  7. D3 - MOVE FREE JOINT [Concomitant]
  8. LABATOLOL [Concomitant]

REACTIONS (8)
  - Oropharyngeal pain [None]
  - Rash [None]
  - Skin exfoliation [None]
  - Erythema [None]
  - Sensory disturbance [None]
  - Pain in extremity [None]
  - Peripheral swelling [None]
  - Blister [None]

NARRATIVE: CASE EVENT DATE: 20170418
